FAERS Safety Report 6779903 (Version 2)
Quarter: 2013Q4

REPORT INFORMATION
  Report Type: Spontaneous
  Country: US (occurrence: None)
  Receive Date: 20080922
  Receipt Date: 20131205
  Transmission Date: 20140711
  Serious: Yes (Other)
  Sender: FDA-Public Use
  Company Number: 2008S1009163

PATIENT
  Age: 68 Year
  Sex: Female

DRUGS (1)
  1. PHOSPHORIC ACID\SODIUM INDIGO SULFONATE [Suspect]
     Indication: COLONOSCOPY
     Dosage: 90ML, 2 IN 24 HOURS, ORAL
     Route: 048
     Dates: start: 20070515, end: 20080516

REACTIONS (6)
  - Renal failure chronic [None]
  - Renal failure acute [None]
  - Anaemia [None]
  - Diarrhoea [None]
  - Nephropathy [None]
  - Nausea [None]
